FAERS Safety Report 17080102 (Version 1)
Quarter: 2019Q4

REPORT INFORMATION
  Report Type: Spontaneous
  Country: US (occurrence: US)
  Receive Date: 20191029
  Receipt Date: 20191029
  Transmission Date: 20200122
  Serious: Yes (Hospitalization)
  Sender: FDA-Public Use
  Company Number: None

PATIENT
  Sex: Female

DRUGS (9)
  1. ACZONE [Concomitant]
     Active Substance: DAPSONE
  2. DOXYCYCL HYC [Concomitant]
  3. LASIX [Concomitant]
     Active Substance: FUROSEMIDE
  4. AMBRISENTAN 10MG [Suspect]
     Active Substance: AMBRISENTAN
     Indication: PULMONARY ARTERIAL HYPERTENSION
     Route: 048
     Dates: start: 20190911
  5. COUMADIN [Concomitant]
     Active Substance: WARFARIN SODIUM
  6. CLEMASTINE [Concomitant]
     Active Substance: CLEMASTINE
  7. POTASSIUM [Concomitant]
     Active Substance: POTASSIUM
  8. ADCIRCA [Concomitant]
     Active Substance: TADALAFIL
  9. FINACEA [Concomitant]
     Active Substance: AZELAIC ACID

REACTIONS (3)
  - Palpitations [None]
  - Fatigue [None]
  - Dyspnoea [None]
